FAERS Safety Report 17044671 (Version 2)
Quarter: 2019Q4

REPORT INFORMATION
  Report Type: Report from Study
  Country: US (occurrence: US)
  Receive Date: 20191118
  Receipt Date: 20191219
  Transmission Date: 20200122
  Serious: Yes (Death, Hospitalization)
  Sender: FDA-Public Use
  Company Number: US-EXELIXIS-CABO-19024385

PATIENT
  Age: 50 Year
  Sex: Male
  Weight: 65.39 kg

DRUGS (2)
  1. CABOMETYX [Suspect]
     Active Substance: CABOZANTINIB S-MALATE
     Dosage: 40 MG, QD
     Route: 048
  2. CABOMETYX [Suspect]
     Active Substance: CABOZANTINIB S-MALATE
     Indication: RENAL CANCER
     Dosage: 60 MG, QD (MORNING ON AN EMPTY STOMACH)
     Route: 048
     Dates: start: 20190923

REACTIONS (8)
  - Feeding disorder [Unknown]
  - Weight decreased [Unknown]
  - Decreased appetite [Unknown]
  - Malaise [Unknown]
  - Fatigue [Unknown]
  - Death [Fatal]
  - Haematuria [Unknown]
  - Nausea [Unknown]

NARRATIVE: CASE EVENT DATE: 201910
